FAERS Safety Report 6220009-5 (Version None)
Quarter: 2009Q2

REPORT INFORMATION
  Report Type: 
  Country: None (occurrence: None)
  Receive Date: 20090609
  Receipt Date: 20090603
  Transmission Date: 20091009
  Serious: Yes (Other)
  Sender: FDA-Public Use
  Company Number: US-BRISTOL-MYERS SQUIBB COMPANY-14652515

PATIENT
  Sex: Male

DRUGS (2)
  1. ENTECAVIR [Suspect]
     Route: 048
     Dates: start: 20051101
  2. VIREAD [Suspect]
     Dates: start: 20070301

REACTIONS (3)
  - DRUG TOLERANCE [None]
  - FANCONI SYNDROME [None]
  - HEPATIC NEOPLASM MALIGNANT [None]
